FAERS Safety Report 11669852 (Version 2)
Quarter: 2016Q2

REPORT INFORMATION
  Report Type: Spontaneous
  Country: DK (occurrence: CA)
  Receive Date: 20151027
  Receipt Date: 20160627
  Transmission Date: 20160815
  Serious: Yes (Disabling, Other)
  Sender: FDA-Public Use
  Company Number: CA-FRI-1000080405

PATIENT
  Age: 64 Year
  Sex: Female
  Weight: 70 kg

DRUGS (6)
  1. CELEXA [Suspect]
     Active Substance: CITALOPRAM HYDROBROMIDE
     Indication: DRUG PRESCRIBING ERROR
     Dosage: 20 MG
     Route: 048
  2. LIPITOR [Concomitant]
     Active Substance: ATORVASTATIN CALCIUM
     Indication: BLOOD CHOLESTEROL INCREASED
     Dosage: 20 MG
     Route: 065
  3. EPIVAL [Suspect]
     Active Substance: DIVALPROEX SODIUM
     Indication: DRUG PRESCRIBING ERROR
     Dosage: UNECESSARY
     Route: 065
  4. LOXAPINE. [Suspect]
     Active Substance: LOXAPINE
     Indication: DRUG PRESCRIBING ERROR
     Dosage: 1 DF
     Route: 065
  5. ABILIFY [Suspect]
     Active Substance: ARIPIPRAZOLE
     Indication: DRUG PRESCRIBING ERROR
     Dosage: UNECESSARY
     Route: 065
  6. DETROL LA [Concomitant]
     Active Substance: TOLTERODINE TARTRATE
     Indication: BLADDER DISORDER
     Dosage: 4 MG
     Route: 065

REACTIONS (2)
  - Bladder disorder [Not Recovered/Not Resolved]
  - Somnolence [Not Recovered/Not Resolved]
